FAERS Safety Report 5120113-9 (Version None)
Quarter: 2006Q4

REPORT INFORMATION
  Report Type: 
  Country: None (occurrence: None)
  Receive Date: 20061002
  Receipt Date: 20061002
  Transmission Date: 20070319
  Serious: Yes (Hospitalization)
  Sender: FDA-Public Use
  Company Number: None

PATIENT
  Sex: Female
  Weight: 62.1 kg

DRUGS (14)
  1. CETUXIMAB [Suspect]
     Indication: PANCREATIC CARCINOMA
     Dosage: 418 MG WEEKLY IV
     Route: 042
     Dates: start: 20060822, end: 20060822
  2. GEMCITABINE [Suspect]
     Indication: PANCREATIC CARCINOMA
     Dosage: 1670 MG EVERY 2 WEEKS IV
     Route: 042
     Dates: start: 20060808, end: 20060808
  3. OXALIPLATIN 167MG EVERY 2 [Suspect]
  4. SYNTHROID [Concomitant]
  5. NEXIUM [Concomitant]
  6. MAGNESIUM OXIDE [Concomitant]
  7. COMPAZINE [Concomitant]
  8. ACTIGAL [Concomitant]
  9. HYDROCODONE BITARTRATE + ACETAMINOPHEN [Concomitant]
  10. ZOFRAN [Concomitant]
  11. IMODIUM [Concomitant]
  12. LOMOTIL [Concomitant]
  13. LEVAQUIN [Concomitant]
  14. ZYVOX [Concomitant]

REACTIONS (5)
  - BACTERIA BODY FLUID IDENTIFIED [None]
  - CHOLECYSTITIS [None]
  - CHOLELITHIASIS [None]
  - ESCHERICHIA INFECTION [None]
  - LIVER ABSCESS [None]
